FAERS Safety Report 9832466 (Version 3)
Quarter: 2014Q1

REPORT INFORMATION
  Report Type: Report from Study
  Country: US (occurrence: US)
  Receive Date: 20140121
  Receipt Date: 20140306
  Transmission Date: 20141002
  Serious: Yes (Death, Hospitalization)
  Sender: FDA-Public Use
  Company Number: US-BAYER-2013-149993

PATIENT
  Age: 53 Year
  Sex: Male

DRUGS (1)
  1. ADEMPAS [Suspect]
     Indication: COR PULMONALE CHRONIC
     Dosage: 2.5 MG, TID
     Route: 048
     Dates: start: 20131214

REACTIONS (4)
  - Oedema peripheral [None]
  - Catheter site oedema [None]
  - Renal failure [None]
  - Death [Fatal]
